FAERS Safety Report 7042297-8 (Version None)
Quarter: 2010Q4

REPORT INFORMATION
  Report Type: 
  Country: None (occurrence: None)
  Receive Date: 20101013
  Receipt Date: 20100426
  Transmission Date: 20110411
  Serious: No
  Sender: FDA-Public Use
  Company Number: US-ASTRAZENECA-2010SE06403

PATIENT
  Age: 74 Year
  Sex: Male
  Weight: 99.8 kg

DRUGS (10)
  1. SYMBICORT [Suspect]
     Indication: CHRONIC OBSTRUCTIVE PULMONARY DISEASE
     Dosage: 160/4.5 TWO PUFFS BID
     Route: 055
     Dates: start: 20090101
  2. ASPIRIN [Concomitant]
  3. LOVAZA [Concomitant]
  4. VIT D [Concomitant]
  5. CENTRUM SILVER [Concomitant]
  6. GABAPENTIN [Concomitant]
  7. FUROSEMIDE [Concomitant]
  8. FLUROZEPAM [Concomitant]
  9. GLUCOSAMINE [Concomitant]
  10. FLOMAX [Concomitant]

REACTIONS (6)
  - BONE DENSITY DECREASED [None]
  - CHILLS [None]
  - CONSTIPATION [None]
  - COUGH [None]
  - EYE DISORDER [None]
  - OSTEOPOROSIS [None]
